FAERS Safety Report 24107676 (Version 1)
Quarter: 2024Q3

REPORT INFORMATION
  Report Type: Spontaneous
  Country: NL (occurrence: NL)
  Receive Date: 20240718
  Receipt Date: 20240718
  Transmission Date: 20241017
  Serious: Yes (Hospitalization)
  Sender: AUROBINDO
  Company Number: NL-LRB-00985278

PATIENT
  Age: 55 Year
  Sex: Male
  Weight: 96 kg

DRUGS (1)
  1. METHADONE HYDROCHLORIDE [Suspect]
     Active Substance: METHADONE HYDROCHLORIDE
     Indication: Product used for unknown indication
     Dosage: 35 MILLIGRAM, ONCE A DAY (1 X PER DAG 3,5 STUK)
     Route: 065
     Dates: start: 20240522, end: 20240524

REACTIONS (1)
  - Somnolence [Recovered/Resolved]
